FAERS Safety Report 7573826-3 (Version None)
Quarter: 2011Q2

REPORT INFORMATION
  Report Type: 
  Country: None (occurrence: None)
  Receive Date: 20110627
  Receipt Date: 20110607
  Transmission Date: 20111010
  Serious: Yes (Other)
  Sender: FDA-Public Use
  Company Number: A0848924A

PATIENT
  Sex: Male
  Weight: 100.5 kg

DRUGS (7)
  1. ZESTRIL [Concomitant]
  2. COZAAR [Concomitant]
  3. LIPITOR [Concomitant]
  4. AVANDIA [Suspect]
     Indication: DIABETES MELLITUS
     Route: 048
     Dates: end: 20070101
  5. INSULIN [Concomitant]
  6. ASPIRIN [Concomitant]
  7. STARLIX [Concomitant]

REACTIONS (4)
  - MACULAR OEDEMA [None]
  - CARDIOVASCULAR DISORDER [None]
  - ANGINA PECTORIS [None]
  - CORONARY ARTERY DISEASE [None]
